FAERS Safety Report 8530990 (Version 4)
Quarter: 2012Q4

REPORT INFORMATION
  Report Type: 
  Country: SE (occurrence: SE)
  Receive Date: 20120426
  Receipt Date: 20121114
  Transmission Date: 20130627
  Serious: Yes (Other)
  Sender: FDA-Public Use
  Company Number: SE-BAYER-2012-039009

PATIENT
  Sex: Female

DRUGS (2)
  1. YASMIN [Suspect]
     Dosage: UNK
  2. UNSPECIFIED  INGREDIENT [Suspect]
     Dosage: UNK
     Dates: start: 2006, end: 201108

REACTIONS (3)
  - Weight increased [Not Recovered/Not Resolved]
  - Acne [Recovering/Resolving]
  - Endometritis [Unknown]
